FAERS Safety Report 11103025 (Version 1)
Quarter: 2015Q2

REPORT INFORMATION
  Report Type: Spontaneous
  Country: CA (occurrence: CA)
  Receive Date: 20150511
  Receipt Date: 20150511
  Transmission Date: 20150821
  Serious: Yes (Hospitalization)
  Sender: FDA-Public Use
  Company Number: CA-APOTEX-2015AP008983

PATIENT
  Age: 28 Year
  Sex: Male

DRUGS (3)
  1. APO-DONEPEZIL (DONEPEZIL) TABLET [Suspect]
     Active Substance: DONEPEZIL
     Indication: DEMENTIA ALZHEIMER^S TYPE
     Dosage: 5 MG, UNK
     Route: 065
  2. APO-DONEPEZIL (DONEPEZIL) TABLET [Suspect]
     Active Substance: DONEPEZIL
     Dosage: 15 MG, UNK
     Route: 065
  3. APO-DONEPEZIL (DONEPEZIL) TABLET [Suspect]
     Active Substance: DONEPEZIL
     Dosage: 10 MG, UNK
     Route: 065

REACTIONS (3)
  - Diarrhoea [Unknown]
  - Intentional product misuse [Recovering/Resolving]
  - Mania [Recovering/Resolving]
